FAERS Safety Report 9128777 (Version 7)
Quarter: 2015Q2

REPORT INFORMATION
  Report Type: Report from Study
  Country: US (occurrence: US)
  Receive Date: 20130228
  Receipt Date: 20150626
  Transmission Date: 20150821
  Serious: Yes (Death, Hospitalization, Other)
  Sender: FDA-Public Use
  Company Number: US-UCBSA-078967

PATIENT
  Age: 64 Year
  Sex: Female
  Weight: 35.3 kg

DRUGS (7)
  1. METHOTREXATE [Concomitant]
     Active Substance: METHOTREXATE
     Indication: RHEUMATOID ARTHRITIS
     Dosage: 15 MG, WEEKLY (QW)
     Dates: start: 20121120
  2. CERTOLIZUMAB PEGOL RA [Suspect]
     Active Substance: CERTOLIZUMAB PEGOL
     Dosage: 400 MG, EV 2 WEEKS(QOW)
     Route: 058
     Dates: start: 20121108, end: 20121218
  3. FOLIC ACID. [Concomitant]
     Active Substance: FOLIC ACID
     Indication: PROPHYLAXIS
     Dosage: 2 MG, ONCE DAILY (QD)
     Route: 048
     Dates: start: 20121120
  4. CERTOLIZUMAB PEGOL RA [Suspect]
     Active Substance: CERTOLIZUMAB PEGOL
     Indication: RHEUMATOID ARTHRITIS
     Dosage: 200 MG, EV 2 WEEKS(QOW)
     Route: 058
     Dates: start: 20121219, end: 20130116
  5. METHOTREXATE [Concomitant]
     Active Substance: METHOTREXATE
     Dosage: 10 MG, WEEKLY (QW)
  6. MELOXICAM. [Concomitant]
     Active Substance: MELOXICAM
     Indication: HYPERTENSION
     Dosage: 15 MG, ONCE DAILY (QD)
     Route: 048
     Dates: start: 20121027
  7. CIPRO [Concomitant]
     Active Substance: CIPROFLOXACIN HYDROCHLORIDE
     Indication: URINARY TRACT INFECTION
     Dosage: 500 MG, 2X/DAY (BID)
     Route: 048
     Dates: start: 20130131

REACTIONS (3)
  - Acute respiratory distress syndrome [Fatal]
  - Pulmonary tuberculosis [Fatal]
  - Tuberculosis gastrointestinal [Fatal]

NARRATIVE: CASE EVENT DATE: 20130217
